FAERS Safety Report 8318120-8 (Version None)
Quarter: 2012Q2

REPORT INFORMATION
  Report Type: 
  Country: None (occurrence: None)
  Receive Date: 20120425
  Receipt Date: 20120411
  Transmission Date: 20120825
  Serious: Yes (Hospitalization)
  Sender: FDA-Public Use
  Company Number: US-2012-10428

PATIENT
  Age: 64 Year
  Sex: Female

DRUGS (10)
  1. NOXAFIL [Concomitant]
  2. VALACICLOVIR [Concomitant]
  3. GENTAMICINE (GENTAMICIN SULFATE) [Concomitant]
  4. FLUDARA [Suspect]
     Indication: BONE MARROW CONDITIONING REGIMEN
     Dates: start: 20120303, end: 20120307
  5. COLIMYCINE (COLISTIN SULFATE) [Concomitant]
  6. MYCAMINE (MICAFUNGIN SODIUM) [Concomitant]
  7. SOLU-MEDROL [Concomitant]
  8. THYMOGLOBULIN [Suspect]
     Indication: BONE MARROW CONDITIONING REGIMEN
     Dosage: 5 MG/ML
     Dates: start: 20120306, end: 20120307
  9. BACTRIM [Concomitant]
  10. BUSULFAN [Suspect]
     Indication: BONE MARROW CONDITIONING REGIMEN
     Dosage: 6 MG/ML
     Dates: start: 20120304, end: 20120306

REACTIONS (3)
  - HYPERTENSION [None]
  - HYPERTHERMIA [None]
  - CYTOLYTIC HEPATITIS [None]
